FAERS Safety Report 25801681 (Version 1)
Quarter: 2025Q3

REPORT INFORMATION
  Report Type: Spontaneous
  Country: US (occurrence: US)
  Receive Date: 20250915
  Receipt Date: 20250915
  Transmission Date: 20251021
  Serious: Yes (Death, Hospitalization, Other)
  Sender: ZYDUS PHARM
  Company Number: US-CADILA HEALTHCARE LIMITED-US-ZYDUS-128124

PATIENT

DRUGS (8)
  1. CARVEDILOL [Suspect]
     Active Substance: CARVEDILOL
     Indication: Myopericarditis
     Route: 065
  2. CARVEDILOL [Suspect]
     Active Substance: CARVEDILOL
     Route: 065
  3. COLCHICINE [Suspect]
     Active Substance: COLCHICINE
     Indication: Myopericarditis
     Route: 065
  4. COLCHICINE [Suspect]
     Active Substance: COLCHICINE
     Route: 065
  5. COCAINE [Concomitant]
     Active Substance: COCAINE
     Indication: Product used for unknown indication
     Route: 065
  6. METHAMPHETAMINE [Concomitant]
     Active Substance: METHAMPHETAMINE
     Indication: Product used for unknown indication
     Route: 065
  7. ZOFRAN [Concomitant]
     Active Substance: ONDANSETRON HYDROCHLORIDE
     Indication: Vomiting
     Route: 042
  8. SODIUM CHLORIDE [Concomitant]
     Active Substance: SODIUM CHLORIDE
     Indication: Vomiting
     Route: 065

REACTIONS (7)
  - Bradycardia [Fatal]
  - Cardiogenic shock [Fatal]
  - Cardiac dysfunction [Fatal]
  - Multiple organ dysfunction syndrome [Fatal]
  - Overdose [Unknown]
  - Drug abuse [Unknown]
  - Toxicity to various agents [Unknown]
